FAERS Safety Report 19520554 (Version 1)
Quarter: 2021Q3

REPORT INFORMATION
  Report Type: Spontaneous
  Country: US (occurrence: US)
  Receive Date: 20210712
  Receipt Date: 20210712
  Transmission Date: 20211014
  Serious: No
  Sender: FDA-Public Use
  Company Number: US-FOUNDATIONCONSUMERHC-2021-US-013166

PATIENT
  Age: 44 Year
  Sex: Female
  Weight: 63.5 kg

DRUGS (3)
  1. LEVOTHYROXINE. [Concomitant]
     Active Substance: LEVOTHYROXINE
  2. VALSPARTAN [Concomitant]
  3. PLAN B ONE?STEP [Suspect]
     Active Substance: LEVONORGESTREL
     Indication: POST COITAL CONTRACEPTION
     Dosage: 1.5MG X 2
     Route: 048
     Dates: start: 20210609, end: 20210612

REACTIONS (4)
  - Abdominal distension [Unknown]
  - Breast swelling [Not Recovered/Not Resolved]
  - Headache [Unknown]
  - Breast tenderness [Not Recovered/Not Resolved]

NARRATIVE: CASE EVENT DATE: 202106
